FAERS Safety Report 19919201 (Version 1)
Quarter: 2021Q4

REPORT INFORMATION
  Report Type: Spontaneous
  Country: GB (occurrence: GB)
  Receive Date: 20211004
  Receipt Date: 20211004
  Transmission Date: 20220303
  Serious: Yes (Other)
  Sender: FDA-Public Use
  Company Number: None

PATIENT
  Age: 45 Year
  Sex: Male

DRUGS (1)
  1. PENICILLIN G SODIUM [Suspect]
     Active Substance: PENICILLIN G SODIUM
     Indication: Ill-defined disorder
     Route: 065
     Dates: start: 20210922

REACTIONS (1)
  - Illness [Unknown]

NARRATIVE: CASE EVENT DATE: 20210922
